FAERS Safety Report 8106987 (Version 3)
Quarter: 2013Q4

REPORT INFORMATION
  Report Type: Spontaneous
  Country: US (occurrence: US)
  Receive Date: 20110825
  Receipt Date: 20131202
  Transmission Date: 20140711
  Serious: Yes (Other)
  Sender: FDA-Public Use
  Company Number: US-BAYER-2011-074976

PATIENT
  Age: 28 Year
  Sex: Female

DRUGS (5)
  1. YAZ [Suspect]
     Indication: OVARIAN CYST
     Dosage: UNK
     Dates: start: 2007, end: 2009
  2. LEVOTHYROXINE [Concomitant]
     Dosage: 50 MCG, UNK
  3. SYNTHROID [Concomitant]
     Dosage: 100 MICROGRAMS A DAY
     Dates: start: 20081211
  4. VICODIN [Concomitant]
     Indication: PAIN
     Dosage: UNK
  5. CHANTIX [Concomitant]
     Indication: EX-TOBACCO USER
     Dosage: UNK

REACTIONS (3)
  - Gallbladder injury [Unknown]
  - Cholelithiasis [None]
  - Off label use [None]
